FAERS Safety Report 10071624 (Version 3)
Quarter: 2014Q4

REPORT INFORMATION
  Report Type: Spontaneous
  Country: GR (occurrence: GR)
  Receive Date: 20140410
  Receipt Date: 20141003
  Transmission Date: 20150528
  Serious: Yes (Other)
  Sender: FDA-Public Use
  Company Number: GR-AMGEN-GRCSP2014024927

PATIENT
  Age: 82 Year
  Sex: Female

DRUGS (12)
  1. VERMOX [Concomitant]
     Active Substance: MEBENDAZOLE
     Route: 065
  2. SERETIDE [Concomitant]
     Active Substance: FLUTICASONE FUROATE\SALMETEROL XINAFOATE
     Route: 065
  3. LASIX [Concomitant]
     Active Substance: FUROSEMIDE
     Route: 065
  4. ZESTRIL [Concomitant]
     Active Substance: LISINOPRIL
     Route: 065
  5. MAGNESIUM [Concomitant]
     Active Substance: MAGNESIUM
     Route: 065
  6. LEXOTANIL [Concomitant]
     Active Substance: BROMAZEPAM
     Route: 065
  7. CALCIONAL CITRATO [Concomitant]
     Route: 065
  8. VERBORIL                           /00055702/ [Concomitant]
     Route: 065
  9. STILNOX [Concomitant]
     Active Substance: ZOLPIDEM TARTRATE
     Route: 065
  10. PROPAFENONE HCL [Concomitant]
     Active Substance: PROPAFENONE HYDROCHLORIDE
     Route: 065
  11. FENOBRAT [Concomitant]
     Route: 065
  12. PROLIA [Suspect]
     Active Substance: DENOSUMAB
     Indication: OSTEOPOROSIS
     Dosage: 60 MG, Q6MO
     Route: 065

REACTIONS (4)
  - Fistula [Recovering/Resolving]
  - Exostosis of jaw [Recovering/Resolving]
  - Exposed bone in jaw [Recovering/Resolving]
  - Osteonecrosis of jaw [Unknown]

NARRATIVE: CASE EVENT DATE: 201401
